FAERS Safety Report 8086632-0 (Version None)
Quarter: 2012Q1

REPORT INFORMATION
  Report Type: 
  Country: None (occurrence: None)
  Receive Date: 20120128
  Receipt Date: 20110513
  Transmission Date: 20120608
  Serious: No
  Sender: FDA-Public Use
  Company Number: US-ABBOTT-11P-163-0726336-00

PATIENT
  Sex: Female
  Weight: 88.076 kg

DRUGS (8)
  1. SOMA [Concomitant]
     Indication: INSOMNIA
  2. HUMIRA [Suspect]
     Indication: PSORIATIC ARTHROPATHY
     Dates: start: 20110401
  3. METHOTREXATE [Concomitant]
     Indication: PSORIATIC ARTHROPATHY
     Dates: start: 20081101
  4. BENECAR HCT [Concomitant]
     Indication: HYPERTENSION
  5. ENBREL [Suspect]
     Indication: PRODUCT USED FOR UNKNOWN INDICATION
  6. MULTI-VITAMIN [Concomitant]
     Indication: VITAMIN SUPPLEMENTATION
  7. FOLIC ACID [Concomitant]
     Indication: MINERAL SUPPLEMENTATION
  8. TRAMADOL HCL [Concomitant]
     Indication: PAIN
     Dosage: DAILY PRN

REACTIONS (2)
  - BACK PAIN [None]
  - INCREASED TENDENCY TO BRUISE [None]
